FAERS Safety Report 10502218 (Version 1)
Quarter: 2014Q4

REPORT INFORMATION
  Report Type: Report from Study
  Country: BR (occurrence: BR)
  Receive Date: 20141007
  Receipt Date: 20141007
  Transmission Date: 20150528
  Serious: Yes (Other)
  Sender: FDA-Public Use
  Company Number: PHHY2014BR129354

PATIENT
  Sex: Male
  Weight: 120 kg

DRUGS (9)
  1. HYDROCHLOORTHIAZIDE [Suspect]
     Active Substance: HYDROCHLOROTHIAZIDE
     Indication: SWELLING
  2. PURAN [Concomitant]
     Active Substance: LEVOTHYROXINE SODIUM
     Indication: GOITRE
     Dosage: 1 DF, FASTING
  3. HYDROCHLOORTHIAZIDE [Suspect]
     Active Substance: HYDROCHLOROTHIAZIDE
     Indication: POLLAKIURIA
     Dosage: 1 DF, IN THE MORNING
     Route: 065
  4. SANDOSTATIN LAR DEPOT [Suspect]
     Active Substance: OCTREOTIDE ACETATE
     Indication: PITUITARY TUMOUR
     Dosage: 1 DF, EVERY 28 DAYS
     Route: 065
  5. AAS [Suspect]
     Active Substance: ASPIRIN
     Indication: BLOOD DISORDER
     Dosage: 2 DF, QD
  6. DIOVAN HCT [Suspect]
     Active Substance: HYDROCHLOROTHIAZIDE\VALSARTAN
     Indication: HYPERTENSION
     Dosage: 1 DF, IN THE MORNING
     Route: 065
  7. METFORMIN [Suspect]
     Active Substance: METFORMIN HYDROCHLORIDE
     Indication: DIABETES MELLITUS
     Dosage: 1 DF, IN THE MORNING IN THE AFTERNOON AND AT NIGHT
     Route: 065
  8. NPH INSULIN [Suspect]
     Active Substance: INSULIN BEEF
     Indication: DIABETES MELLITUS
     Route: 065
  9. DIOVAN [Suspect]
     Active Substance: VALSARTAN
     Indication: PRODUCT USED FOR UNKNOWN INDICATION
     Dosage: 1 DF, UNK
     Route: 065

REACTIONS (18)
  - Body fat disorder [Unknown]
  - Alopecia [Unknown]
  - Abdominal distension [Unknown]
  - Blood triglycerides decreased [Unknown]
  - Blood prolactin increased [Unknown]
  - Hirsutism [Unknown]
  - Insulin-like growth factor decreased [Unknown]
  - Blood growth hormone increased [Recovering/Resolving]
  - Blood cholesterol decreased [Unknown]
  - Urine output decreased [Unknown]
  - Galactorrhoea [Unknown]
  - Tooth disorder [Unknown]
  - Urine output increased [Unknown]
  - Rectal polyp [Unknown]
  - Haemorrhage [Unknown]
  - Weight increased [Not Recovered/Not Resolved]
  - Tooth infection [Unknown]
  - Nerve injury [Unknown]
